FAERS Safety Report 7685446-0 (Version None)
Quarter: 2011Q3

REPORT INFORMATION
  Report Type: 
  Country: None (occurrence: None)
  Receive Date: 20110816
  Receipt Date: 20110810
  Transmission Date: 20111222
  Serious: Yes (Other)
  Sender: FDA-Public Use
  Company Number: CN-PFIZER INC-2011183202

PATIENT

DRUGS (1)
  1. IRINOTECAN HCL [Suspect]
     Dosage: UNK

REACTIONS (1)
  - ORAL MUCOSAL EXFOLIATION [None]
